FAERS Safety Report 17243889 (Version 1)
Quarter: 2020Q1

REPORT INFORMATION
  Report Type: Spontaneous
  Country: US (occurrence: US)
  Receive Date: 20200107
  Receipt Date: 20200107
  Transmission Date: 20200409
  Serious: No
  Sender: FDA-Public Use
  Company Number: US-ROCHE-2381276

PATIENT
  Sex: Female
  Weight: 79.45 kg

DRUGS (1)
  1. ACTIVASE [Suspect]
     Active Substance: ALTEPLASE
     Indication: THROMBOSIS
     Route: 065
     Dates: start: 20190809

REACTIONS (1)
  - Pregnancy [Unknown]
